FAERS Safety Report 6222978-6 (Version None)
Quarter: 2009Q2

REPORT INFORMATION
  Report Type: 
  Country: None (occurrence: None)
  Receive Date: 20090611
  Receipt Date: 20090608
  Transmission Date: 20091009
  Serious: Yes (Hospitalization)
  Sender: FDA-Public Use
  Company Number: CA-B.I. PHARMACEUTICALS,INC./RIDGEFIELD-2009-BP-07033YA

PATIENT
  Age: 78 Year
  Sex: Male

DRUGS (6)
  1. TAMSULOSIN HCL [Suspect]
     Dosage: .4MG
     Route: 048
  2. VIAGRA [Suspect]
     Indication: ERECTILE DYSFUNCTION
     Route: 048
     Dates: start: 20040101
  3. LIPITOR [Concomitant]
     Dosage: 20MG
     Route: 048
  4. NORVASC [Concomitant]
     Dosage: 10MG
     Route: 048
  5. PLAVIX [Concomitant]
     Dosage: 75MG
     Route: 048
  6. DITROPAN [Concomitant]
     Dosage: 5MG
     Route: 048

REACTIONS (3)
  - CEREBROVASCULAR ACCIDENT [None]
  - DRUG INEFFECTIVE [None]
  - DRUG INTERACTION [None]
